FAERS Safety Report 5458216-1 (Version None)
Quarter: 2007Q3

REPORT INFORMATION
  Report Type: 
  Country: None (occurrence: None)
  Receive Date: 20070919
  Receipt Date: 20070322
  Transmission Date: 20080115
  Serious: No
  Sender: FDA-Public Use
  Company Number: US-ASTRAZENECA-2007UW05750

PATIENT
  Age: 19 Year
  Sex: Female

DRUGS (3)
  1. SEROQUEL [Suspect]
     Dosage: 39 TABS
     Route: 048
  2. VALIUM [Suspect]
     Dosage: 88 TABS
     Route: 048
  3. METH [Suspect]

REACTIONS (2)
  - INTENTIONAL OVERDOSE [None]
  - STOMACH DISCOMFORT [None]
